FAERS Safety Report 25640307 (Version 1)
Quarter: 2025Q3

REPORT INFORMATION
  Report Type: Report from Study
  Country: US (occurrence: US)
  Receive Date: 20250804
  Receipt Date: 20250804
  Transmission Date: 20251021
  Serious: No
  Sender: MALLINCKRODT
  Company Number: US-MALLINCKRODT-MNK202504242

PATIENT
  Sex: Male

DRUGS (4)
  1. CORTICOTROPIN [Suspect]
     Active Substance: CORTICOTROPIN
     Indication: Pulmonary sarcoidosis
     Dates: start: 20250522
  2. METHOTREXATE [Concomitant]
     Active Substance: METHOTREXATE
  3. AMOXICILLIN [Concomitant]
     Active Substance: AMOXICILLIN
     Dates: end: 20250708
  4. ROCEPHIN [Concomitant]
     Active Substance: CEFTRIAXONE SODIUM
     Route: 042

REACTIONS (5)
  - Abdominal discomfort [Unknown]
  - Upper respiratory tract infection [Unknown]
  - Injection site bruising [Unknown]
  - Fatigue [Unknown]
  - Lethargy [Unknown]

NARRATIVE: CASE EVENT DATE: 20250101
